FAERS Safety Report 9957372 (Version 2)
Quarter: 2014Q1

REPORT INFORMATION
  Report Type: Report from Study
  Country: US (occurrence: US)
  Receive Date: 20140304
  Receipt Date: 20140304
  Transmission Date: 20141002
  Serious: No
  Sender: FDA-Public Use
  Company Number: US-ABBVIE-13P-163-1079051-00

PATIENT
  Age: 62 Year
  Sex: Male

DRUGS (13)
  1. HUMIRA [Suspect]
     Indication: CROHN^S DISEASE
     Dosage: LOADING DOSE
     Route: 058
     Dates: start: 20130327, end: 20130327
  2. HUMIRA [Suspect]
     Dosage: LOADING DOSE
     Route: 058
     Dates: start: 20130411, end: 20130411
  3. HUMIRA [Suspect]
     Route: 058
  4. FOSAMAX [Concomitant]
     Indication: OSTEOPOROSIS
  5. CALTRATE [Concomitant]
     Indication: OSTEOPOROSIS
     Dosage: 600 MG DAILY
  6. FISH OIL [Concomitant]
     Indication: VITAMIN SUPPLEMENTATION
     Dosage: 1200 MG 1-2 DAILY SUPPLEMENT
  7. IMURAN [Concomitant]
     Indication: CROHN^S DISEASE
  8. PRILOSEC [Concomitant]
     Indication: GASTROOESOPHAGEAL REFLUX DISEASE
     Dosage: 20 MG DAILY
  9. TRAMADOL [Concomitant]
     Indication: ARTHRALGIA
     Dosage: USUALLY 1 IN THE MORNING
  10. LISINOPRIL HCTZ [Concomitant]
     Indication: HYPERTENSION
     Dosage: 20/25 MG - 1/2 TAB DAILY
  11. ZOCOR [Concomitant]
     Indication: BLOOD CHOLESTEROL INCREASED
  12. IMODIUM [Concomitant]
     Indication: ILEOSTOMY
  13. CELEBREX [Concomitant]
     Indication: ARTHRALGIA
     Route: 048

REACTIONS (2)
  - Malaise [Recovering/Resolving]
  - Arthralgia [Recovering/Resolving]
